FAERS Safety Report 24927050 (Version 1)
Quarter: 2025Q1

REPORT INFORMATION
  Report Type: Report from Study
  Country: US (occurrence: US)
  Receive Date: 20250205
  Receipt Date: 20250205
  Transmission Date: 20250409
  Serious: Yes (Other)
  Sender: ACCORD
  Company Number: US-MYOVANT SCIENCES GMBH-2024MYSCI0600641

PATIENT
  Age: 63 Year
  Sex: Male

DRUGS (5)
  1. METOPROLOL [Suspect]
     Active Substance: METOPROLOL
     Indication: Product used for unknown indication
  2. RELUGOLIX [Suspect]
     Active Substance: RELUGOLIX
     Indication: Prostate cancer
     Dosage: 360 MG, SINGLE
     Route: 048
     Dates: start: 20240618, end: 20240618
  3. ENZALUTAMIDE [Suspect]
     Active Substance: ENZALUTAMIDE
     Indication: Product used for unknown indication
  4. CANNABIDIOL [Concomitant]
     Active Substance: CANNABIDIOL
     Indication: Insomnia
  5. RELUGOLIX [Suspect]
     Active Substance: RELUGOLIX
     Indication: Prostate cancer
     Dosage: 120 MILLIGRAM, QD
     Route: 048
     Dates: start: 20240619

REACTIONS (15)
  - Arrhythmia [Recovering/Resolving]
  - Blood creatinine increased [Unknown]
  - Vision blurred [Unknown]
  - Feeling cold [Unknown]
  - Tachycardia [Unknown]
  - Osteoporosis [Unknown]
  - Nausea [Unknown]
  - Headache [Unknown]
  - Hot flush [Not Recovered/Not Resolved]
  - Fatigue [Not Recovered/Not Resolved]
  - Gynaecomastia [Unknown]
  - Insomnia [Unknown]
  - Pain in extremity [Unknown]
  - Asthenia [Unknown]
  - Blood cholesterol increased [Unknown]
